FAERS Safety Report 7012273-X (Version None)
Quarter: 2010Q3

REPORT INFORMATION
  Report Type: 
  Country: None (occurrence: None)
  Receive Date: 20100922
  Receipt Date: 20100922
  Transmission Date: 20110219
  Serious: Yes (Death)
  Sender: FDA-Public Use
  Company Number: None

PATIENT
  Sex: Male
  Weight: 83.9154 kg

DRUGS (5)
  1. LUCENTIS [Suspect]
     Indication: DIABETIC RETINAL OEDEMA
     Dosage: MASKED, MONTHLY INTRAVITREAL
     Dates: start: 20100522
  2. LUCENTIS [Suspect]
     Indication: DIABETIC RETINAL OEDEMA
     Dosage: MASKED, MONTHLY INTRAVITREAL
     Dates: start: 20100621
  3. LUCENTIS [Suspect]
     Indication: DIABETIC RETINAL OEDEMA
     Dosage: MASKED, MONTHLY INTRAVITREAL
     Dates: start: 20100719
  4. COZAAR [Concomitant]
  5. GLUCOTROL [Concomitant]

REACTIONS (1)
  - MYOCARDIAL INFARCTION [None]
